FAERS Safety Report 19169034 (Version 2)
Quarter: 2021Q2

REPORT INFORMATION
  Report Type: Spontaneous
  Country: US (occurrence: US)
  Receive Date: 20210422
  Receipt Date: 20210423
  Transmission Date: 20210717
  Serious: Yes (Hospitalization)
  Sender: FDA-Public Use
  Company Number: US-NESTLEHEALTHSCIENCE-2021000032

PATIENT
  Age: 61 Year
  Sex: Male

DRUGS (10)
  1. HYDROCHLOROTHIAZIDE. [Concomitant]
     Active Substance: HYDROCHLOROTHIAZIDE
     Dosage: UNKNOWN
  2. PANCRELIPASE. [Suspect]
     Active Substance: PANCRELIPASE
     Dosage: 5000 TOTAL UNITS DAILY
  3. ENALAPRIL [Concomitant]
     Active Substance: ENALAPRIL
     Dosage: UNKNOWN
  4. PANTOPRAZOLE [Concomitant]
     Active Substance: PANTOPRAZOLE
     Dosage: UNKNOWN
  5. ASPIRIN. [Concomitant]
     Active Substance: ASPIRIN
     Dosage: UNKNOWN
  6. MESALAMINE. [Concomitant]
     Active Substance: MESALAMINE
     Dosage: 4.8 G PER DAY
     Dates: start: 202007
  7. ATORVASTATIN [Concomitant]
     Active Substance: ATORVASTATIN
     Dosage: UNKNOWN
  8. FLUOXETINE [Concomitant]
     Active Substance: FLUOXETINE HYDROCHLORIDE
     Dosage: UNKNOWN
  9. FLUTICASONE FUROATE [Concomitant]
     Active Substance: FLUTICASONE FUROATE
     Dosage: UNKNOWN
  10. VILANTEROL [Concomitant]
     Active Substance: VILANTEROL TRIFENATATE
     Dosage: 480 MICROG FOR 6 DAYS

REACTIONS (7)
  - Pyrexia [Recovered/Resolved]
  - Candida infection [Recovered/Resolved]
  - Acute kidney injury [Recovered/Resolved]
  - Abdominal pain [Recovered/Resolved]
  - Idiosyncratic drug reaction [Recovered/Resolved]
  - Diarrhoea [Recovered/Resolved]
  - Neutropenia [Recovered/Resolved]
